FAERS Safety Report 10975108 (Version 1)
Quarter: 2015Q2

REPORT INFORMATION
  Report Type: Spontaneous
  Country: US (occurrence: US)
  Receive Date: 20150401
  Receipt Date: 20150401
  Transmission Date: 20150821
  Serious: No
  Sender: FDA-Public Use
  Company Number: US-PFIZER INC-2015103199

PATIENT
  Age: 67 Year
  Sex: Male

DRUGS (1)
  1. SUTENT [Suspect]
     Active Substance: SUNITINIB MALATE
     Indication: RENAL CELL CARCINOMA STAGE IV
     Dosage: 50 MG, DAILY
     Dates: start: 200602

REACTIONS (4)
  - Disease progression [Unknown]
  - Fatigue [Unknown]
  - Renal cell carcinoma stage IV [Unknown]
  - Diarrhoea [Recovered/Resolved]
